FAERS Safety Report 10582583 (Version 2)
Quarter: 2015Q1

REPORT INFORMATION
  Report Type: Spontaneous
  Country: JP (occurrence: JP)
  Receive Date: 20141113
  Receipt Date: 20150319
  Transmission Date: 20150720
  Serious: Yes (Death)
  Sender: FDA-Public Use
  Company Number: JP-TEVA-521407ISR

PATIENT
  Age: 74 Year
  Sex: Male
  Weight: 43 kg

DRUGS (3)
  1. FENTANYL(FENTANYL CITRATE) [Concomitant]
     Indication: CANCER PAIN
     Dosage: 2 MILLIGRAM DAILY;
     Route: 065
     Dates: start: 20140821, end: 20140823
  2. E-FEN BUCCAL [Suspect]
     Active Substance: FENTANYL CITRATE
     Indication: BREAKTHROUGH PAIN
     Dosage: DAILY DOSE: 100-400 MICROGRAM. OPTIMUM DOSE 100MCG
     Route: 002
     Dates: start: 20140822, end: 20140823
  3. CELECOXIB. [Concomitant]
     Active Substance: CELECOXIB
     Indication: CANCER PAIN
     Route: 048
     Dates: end: 20140822

REACTIONS (3)
  - Product substitution issue [Unknown]
  - Colorectal cancer [Fatal]
  - Somnolence [Not Recovered/Not Resolved]

NARRATIVE: CASE EVENT DATE: 20140823
